FAERS Safety Report 5535340-6 (Version None)
Quarter: 2007Q4

REPORT INFORMATION
  Report Type: 
  Country: None (occurrence: None)
  Receive Date: 20071206
  Receipt Date: 20071123
  Transmission Date: 20080405
  Serious: Yes (Other)
  Sender: FDA-Public Use
  Company Number: US-PFIZER INC-2007080975

PATIENT
  Sex: Female
  Weight: 68 kg

DRUGS (6)
  1. GEODON [Suspect]
     Indication: SCHIZOPHRENIA, PARANOID TYPE
  2. LEXAPRO [Concomitant]
  3. CLONAZEPAM [Concomitant]
  4. SYNTHROID [Concomitant]
  5. PROCARDIA [Concomitant]
  6. LISINOPRIL [Concomitant]

REACTIONS (5)
  - CHOREOATHETOSIS [None]
  - DRUG DEPENDENCE [None]
  - DYSTONIA [None]
  - EXTRAPYRAMIDAL DISORDER [None]
  - TARDIVE DYSKINESIA [None]
